FAERS Safety Report 8922393 (Version 1)
Quarter: 2012Q4

REPORT INFORMATION
  Report Type: 
  Country: ES (occurrence: ES)
  Receive Date: 20121123
  Receipt Date: 20121123
  Transmission Date: 20130627
  Serious: Yes (Other)
  Sender: FDA-Public Use
  Company Number: ES-B.I. PHARMACEUTICALS,INC./RIDGEFIELD-2012-BI-01296YA

PATIENT
  Sex: Male
  Weight: 80 kg

DRUGS (4)
  1. TAMSULOSIN [Suspect]
     Indication: BENIGN PROSTATIC HYPERPLASIA
     Dosage: 0.4 mg
     Route: 048
     Dates: start: 20120905, end: 20120910
  2. RIVOTRIL [Concomitant]
     Indication: RESTLESS LEGS SYNDROME
     Route: 048
  3. SYMBICORT [Concomitant]
  4. CETRIZINE [Concomitant]

REACTIONS (2)
  - Restless legs syndrome [Recovered/Resolved]
  - Condition aggravated [None]
